FAERS Safety Report 4285719-8 (Version None)
Quarter: 2004Q1

REPORT INFORMATION
  Report Type: 
  Country: None (occurrence: None)
  Receive Date: 20040203
  Receipt Date: 20040203
  Transmission Date: 20041129
  Serious: Yes (Other)
  Sender: FDA-Public Use
  Company Number: None

PATIENT
  Age: 11 Year
  Sex: Female
  Weight: 27.6694 kg

DRUGS (1)
  1. ADDERALL 20 [Suspect]
     Indication: ATTENTION DEFICIT/HYPERACTIVITY DISORDER
     Dosage: 20 MG 2 EACH AM ONE A NOON ONE AT 4:00PM ORALLY
     Route: 048

REACTIONS (3)
  - ABNORMAL BEHAVIOUR [None]
  - EDUCATIONAL PROBLEM [None]
  - PHARMACEUTICAL PRODUCT COMPLAINT [None]
